FAERS Safety Report 11616290 (Version 1)
Quarter: 2015Q4

REPORT INFORMATION
  Report Type: Spontaneous
  Country: JP (occurrence: JP)
  Receive Date: 20151009
  Receipt Date: 20151009
  Transmission Date: 20160304
  Serious: Yes (Other)
  Sender: FDA-Public Use
  Company Number: JP-PFIZER INC-2015331446

PATIENT
  Age: 73 Year
  Sex: Female
  Weight: 55 kg

DRUGS (13)
  1. URSODESOXYCHOLIC ACID [Concomitant]
  2. SENNOSIDE [Concomitant]
     Active Substance: SENNOSIDES
  3. SOL-MELCORT [Concomitant]
     Active Substance: METHYLPREDNISOLONE SODIUM SUCCINATE
     Route: 041
  4. FUROSEMIDE. [Concomitant]
     Active Substance: FUROSEMIDE
  5. HALCION [Concomitant]
     Active Substance: TRIAZOLAM
  6. PREDONINE [Concomitant]
     Active Substance: PREDNISOLONE\PREDNISOLONE ACETATE\PREDNISOLONE SODIUM SUCCINATE
     Route: 041
  7. LYRICA [Suspect]
     Active Substance: PREGABALIN
     Dosage: 150 MG, 2X/DAY
     Route: 048
     Dates: start: 20141029, end: 20150615
  8. MICARDIS [Concomitant]
     Active Substance: TELMISARTAN
  9. TRAZENTA [Concomitant]
     Active Substance: LINAGLIPTIN
  10. SELBEX [Concomitant]
     Active Substance: TEPRENONE
  11. AMLODIN [Suspect]
     Active Substance: AMLODIPINE BESYLATE
     Dosage: UNK
     Route: 048
     Dates: end: 20150613
  12. BACTRAMIN [Suspect]
     Active Substance: SULFAMETHOXAZOLE\TRIMETHOPRIM
     Dosage: UNK
     Route: 048
     Dates: end: 20150610
  13. OMEPRAL [Concomitant]
     Active Substance: OMEPRAZOLE

REACTIONS (1)
  - Drug eruption [Recovering/Resolving]

NARRATIVE: CASE EVENT DATE: 20150611
